FAERS Safety Report 7051266-3 (Version None)
Quarter: 2010Q4

REPORT INFORMATION
  Report Type: 
  Country: None (occurrence: None)
  Receive Date: 20101019
  Receipt Date: 20101018
  Transmission Date: 20110411
  Serious: Yes (Hospitalization)
  Sender: FDA-Public Use
  Company Number: JP-BRISTOL-MYERS SQUIBB COMPANY-15271604

PATIENT
  Age: 29 Year
  Sex: Male

DRUGS (3)
  1. ETOPOSIDE [Suspect]
     Indication: ACUTE LYMPHOCYTIC LEUKAEMIA
  2. CYTARABINE [Suspect]
     Indication: ACUTE LYMPHOCYTIC LEUKAEMIA
     Dosage: INJ
  3. DEXAMETHASONE [Suspect]
     Indication: ACUTE LYMPHOCYTIC LEUKAEMIA

REACTIONS (20)
  - ACTIVATED PARTIAL THROMBOPLASTIN TIME PROLONGED [None]
  - ACUTE RESPIRATORY DISTRESS SYNDROME [None]
  - ALANINE AMINOTRANSFERASE INCREASED [None]
  - ANTITHROMBIN III DECREASED [None]
  - ASPARTATE AMINOTRANSFERASE INCREASED [None]
  - BLOOD ALBUMIN DECREASED [None]
  - BLOOD FIBRINOGEN INCREASED [None]
  - BLOOD PH DECREASED [None]
  - BLOOD PRESSURE DECREASED [None]
  - BLOOD SODIUM DECREASED [None]
  - BONE MARROW FAILURE [None]
  - FIBRIN D DIMER INCREASED [None]
  - FIBRIN DEGRADATION PRODUCTS INCREASED [None]
  - GAMMA-GLUTAMYLTRANSFERASE INCREASED [None]
  - HEPATIC FUNCTION ABNORMAL [None]
  - LUNG INFILTRATION [None]
  - PROTHROMBIN TIME PROLONGED [None]
  - RENAL IMPAIRMENT [None]
  - SEPSIS [None]
  - SYSTEMIC INFLAMMATORY RESPONSE SYNDROME [None]
